FAERS Safety Report 7814176-7 (Version None)
Quarter: 2011Q4

REPORT INFORMATION
  Report Type: 
  Country: None (occurrence: None)
  Receive Date: 20111014
  Receipt Date: 20111012
  Transmission Date: 20120403
  Serious: Yes (Life-Threatening, Hospitalization)
  Sender: FDA-Public Use
  Company Number: JP-B.I. PHARMACEUTICALS,INC./RIDGEFIELD-2011-BP-21965NB

PATIENT
  Sex: Male
  Weight: 60 kg

DRUGS (5)
  1. PRADAXA [Suspect]
     Indication: CEREBROVASCULAR ACCIDENT PROPHYLAXIS
     Dosage: 220 MG
     Route: 048
     Dates: start: 20110714, end: 20110804
  2. ZOLPIDEM [Concomitant]
     Route: 048
  3. GAMOFA [Concomitant]
     Indication: GASTRITIS
     Dosage: 40 MG
     Route: 048
     Dates: start: 20110713
  4. ERYTHROCIN LACTOBIONATE [Concomitant]
     Indication: BRONCHIECTASIS
     Dosage: 600 MG
     Route: 048
     Dates: start: 20110715
  5. CLEANAL [Concomitant]
     Indication: BRONCHIECTASIS
     Dosage: 1200 MG
     Route: 048
     Dates: start: 20110715

REACTIONS (3)
  - ACTIVATED PARTIAL THROMBOPLASTIN TIME PROLONGED [None]
  - EMBOLIC STROKE [None]
  - CARDIAC FAILURE CONGESTIVE [None]
